FAERS Safety Report 5428044-1 (Version None)
Quarter: 2007Q3

REPORT INFORMATION
  Report Type: 
  Country: None (occurrence: None)
  Receive Date: 20070828
  Receipt Date: 20070821
  Transmission Date: 20080115
  Serious: Yes (Hospitalization)
  Sender: FDA-Public Use
  Company Number: US-ROXANE LABORATORIES, INC-2007-BP-19644RO

PATIENT
  Age: 3 Year
  Sex: Male
  Weight: 16 kg

DRUGS (13)
  1. CYCLOPHOSPHAMIDE [Suspect]
     Indication: CHEMOTHERAPY
     Route: 042
  2. CYCLOPHOSPHAMIDE [Suspect]
  3. METHOTREXATE [Suspect]
     Indication: CHEMOTHERAPY
  4. LEUCOVORIN CALCIUM [Suspect]
     Indication: CHEMOTHERAPY
  5. CISPLATIN [Suspect]
     Indication: CHEMOTHERAPY
  6. ETOPOSIDE [Suspect]
     Indication: CHEMOTHERAPY
     Route: 048
  7. ETOPOSIDE [Suspect]
  8. VINCRISTINE [Suspect]
     Indication: CHEMOTHERAPY
     Route: 042
  9. VINCRISTINE [Suspect]
  10. FILGRASTIM [Suspect]
     Indication: CHEMOTHERAPY
     Route: 058
  11. TEMOZOLOMIDE [Suspect]
     Indication: CHEMOTHERAPY
     Route: 048
  12. MESNA [Suspect]
     Indication: CHEMOTHERAPY
     Route: 042
  13. PEGFILGRASTIM [Suspect]
     Indication: PANCYTOPENIA

REACTIONS (2)
  - PANCYTOPENIA [None]
  - WHITE BLOOD CELL COUNT INCREASED [None]
